FAERS Safety Report 7387575-8 (Version None)
Quarter: 2011Q1

REPORT INFORMATION
  Report Type: 
  Country: None (occurrence: None)
  Receive Date: 20110331
  Receipt Date: 20110114
  Transmission Date: 20110831
  Serious: No
  Sender: FDA-Public Use
  Company Number: US-BAYER-2011-005605

PATIENT
  Sex: Male
  Weight: 122 kg

DRUGS (8)
  1. LISINOPRIL [Concomitant]
  2. SIMVASTATIN [Concomitant]
  3. GLIPIZIDE [Concomitant]
  4. ACTOS [Concomitant]
  5. JANUMET [Concomitant]
  6. AMLODIPINE [Concomitant]
  7. ALEVE (CAPLET) [Suspect]
     Indication: ANALGESIC THERAPY
     Dosage: 1 DF, BID, TOOK ONE AT 7AM AND ANOTHER AT AROUND 7PM, BOTTLE COUNT 200S
     Route: 048
     Dates: start: 20101001
  8. LEVOTHYROXINE SODIUM [Concomitant]

REACTIONS (1)
  - NO ADVERSE EVENT [None]
